FAERS Safety Report 9921878 (Version 2)
Quarter: 2014Q1

REPORT INFORMATION
  Report Type: Report from Study
  Country: CA (occurrence: CA)
  Receive Date: 20140225
  Receipt Date: 20140225
  Transmission Date: 20141002
  Serious: Yes (Death)
  Sender: FDA-Public Use
  Company Number: CA-BRISTOL-MYERS SQUIBB COMPANY-18713826

PATIENT
  Age: 78 Year
  Sex: Female

DRUGS (11)
  1. ORENCIA [Suspect]
     Indication: RHEUMATOID ARTHRITIS
     Dosage: 1 DF: 750 UNITS NOS.
     Dates: start: 20120529
  2. ARAVA [Concomitant]
     Dosage: DF:PILLS
  3. PANTOLOC [Concomitant]
  4. TYLENOL [Concomitant]
  5. DIOVAN [Concomitant]
  6. ATENOL [Concomitant]
  7. LIPITOR [Concomitant]
  8. PREDNISONE [Concomitant]
  9. CHOLESTYRAMINE [Concomitant]
  10. LASIX [Concomitant]
  11. BUSCOPAN [Concomitant]

REACTIONS (2)
  - Death [Fatal]
  - Clostridium difficile infection [Not Recovered/Not Resolved]
